FAERS Safety Report 6245229-5 (Version None)
Quarter: 2009Q2

REPORT INFORMATION
  Report Type: 
  Country: None (occurrence: None)
  Receive Date: 20090619
  Receipt Date: 20090504
  Transmission Date: 20091009
  Serious: No
  Sender: FDA-Public Use
  Company Number: ALL1-2009-00772

PATIENT
  Age: 28 Year
  Sex: Female
  Weight: 73.9 kg

DRUGS (5)
  1. VYVANSE [Suspect]
     Indication: ATTENTION DEFICIT/HYPERACTIVITY DISORDER
     Dosage: 40 MG, 1X/DAY:QD, ORAL : (ONE-HALF OF A 40MG CAPSULE), 1X/DAY:QD, ORAL
     Route: 048
     Dates: start: 20090319, end: 20090322
  2. VYVANSE [Suspect]
     Indication: ATTENTION DEFICIT/HYPERACTIVITY DISORDER
     Dosage: 40 MG, 1X/DAY:QD, ORAL : (ONE-HALF OF A 40MG CAPSULE), 1X/DAY:QD, ORAL
     Route: 048
     Dates: start: 20090323, end: 20090324
  3. TOPROL-XL [Concomitant]
  4. XANAX [Concomitant]
  5. CYMBALTA [Concomitant]

REACTIONS (8)
  - ANXIETY [None]
  - CHEST DISCOMFORT [None]
  - CRYING [None]
  - DRUG PRESCRIBING ERROR [None]
  - DYSPNOEA [None]
  - FATIGUE [None]
  - MANIA [None]
  - TACHYCARDIA [None]
